FAERS Safety Report 15253177 (Version 2)
Quarter: 2018Q4

REPORT INFORMATION
  Report Type: Spontaneous
  Country: US (occurrence: US)
  Receive Date: 20180807
  Receipt Date: 20181102
  Transmission Date: 20190204
  Serious: No
  Sender: FDA-Public Use
  Company Number: US-RADIUS HEALTH INC.-2018US001497

PATIENT
  Age: 59 Year
  Sex: Female

DRUGS (1)
  1. TYMLOS [Suspect]
     Active Substance: ABALOPARATIDE
     Indication: OSTEOPOROSIS POSTMENOPAUSAL
     Dosage: 80 MCG, ONCE A DAY
     Route: 058
     Dates: start: 20180420

REACTIONS (13)
  - Feeling abnormal [Unknown]
  - Injection site pain [Recovered/Resolved]
  - Product use issue [Unknown]
  - Pain in extremity [Unknown]
  - Nausea [Not Recovered/Not Resolved]
  - Headache [Not Recovered/Not Resolved]
  - Needle issue [Recovered/Resolved]
  - Wrong technique in product usage process [Unknown]
  - Sleep disorder [Not Recovered/Not Resolved]
  - Delayed sleep phase [Not Recovered/Not Resolved]
  - Tachycardia [Unknown]
  - Contusion [Unknown]
  - Heart rate increased [Not Recovered/Not Resolved]

NARRATIVE: CASE EVENT DATE: 20180420
